FAERS Safety Report 18985784 (Version 1)
Quarter: 2021Q1

REPORT INFORMATION
  Report Type: Spontaneous
  Country: US (occurrence: US)
  Receive Date: 20210309
  Receipt Date: 20210309
  Transmission Date: 20210420
  Serious: Yes (Other)
  Sender: FDA-Public Use
  Company Number: US-CIPLA LTD.-2021US01618

PATIENT

DRUGS (2)
  1. BUPROPION. [Suspect]
     Active Substance: BUPROPION
     Dosage: UNK
     Route: 063
  2. ESCITALOPRAM [Suspect]
     Active Substance: ESCITALOPRAM OXALATE
     Dosage: UNK
     Route: 063

REACTIONS (2)
  - Seizure [Unknown]
  - Exposure via breast milk [Unknown]
